FAERS Safety Report 9679964 (Version 3)
Quarter: 2013Q4

REPORT INFORMATION
  Report Type: Report from Study
  Country: BR (occurrence: BR)
  Receive Date: 20131110
  Receipt Date: 20131218
  Transmission Date: 20140711
  Serious: Yes (Other)
  Sender: FDA-Public Use
  Company Number: PHHY2013BR114357

PATIENT
  Age: 62 Year
  Sex: Female

DRUGS (8)
  1. GALVUS MET [Suspect]
     Dosage: 1 DF (1000 MG METF, 50 MG VILD), DAILY
  2. DIOVAN HCT [Suspect]
     Indication: HYPERTENSION
     Dosage: 1 TABLET (320 MG VALS AND 12.5 MG HYDRO) DAILY
     Route: 048
  3. ATENOLOL [Concomitant]
     Indication: HYPERTENSION
     Dosage: 50 MG, DAILY
     Route: 048
  4. CITALOPRAM [Concomitant]
     Indication: DEPRESSION
     Dosage: 1 DF, DAILY
     Route: 048
  5. RIVOTRIL [Concomitant]
     Indication: INSOMNIA
     Dosage: 1 DF (0.5 MG), DAILY
     Route: 048
  6. DONAREN [Concomitant]
     Indication: DEPRESSION
     Dosage: 2 DF (150 MG), DAILY
     Route: 048
  7. GLIMEPIRIDE [Concomitant]
     Indication: DIABETES MELLITUS
     Dosage: 1 DF (4 MG), DAILY
     Route: 048
  8. INSULIN [Concomitant]

REACTIONS (2)
  - Thyroid cancer [Recovering/Resolving]
  - Dysphonia [Recovering/Resolving]
